FAERS Safety Report 25098607 (Version 1)
Quarter: 2025Q1

REPORT INFORMATION
  Report Type: Report from Study
  Country: US (occurrence: US)
  Receive Date: 20250320
  Receipt Date: 20250320
  Transmission Date: 20250409
  Serious: Yes (Hospitalization)
  Sender: RECORDATI
  Company Number: US-RECORDATI RARE DISEASE INC.-2025001717

PATIENT
  Age: 69 Year
  Sex: Female
  Weight: 93.878 kg

DRUGS (12)
  1. SIGNIFOR LAR [Suspect]
     Active Substance: PASIREOTIDE PAMOATE
     Indication: Pituitary-dependent Cushing^s syndrome
     Route: 030
  2. ALLOPURINOL [Concomitant]
     Active Substance: ALLOPURINOL
     Indication: Product used for unknown indication
     Dosage: 100 MG, QD (TABLET)
     Route: 048
     Dates: start: 20220701
  3. CALCITRIOL [Concomitant]
     Active Substance: CALCITRIOL
     Indication: Product used for unknown indication
     Dosage: 0.25 MICROGRAM, QD (CAPSULE)
     Route: 048
     Dates: start: 20220701
  4. ENALAPRIL MALEATE [Concomitant]
     Active Substance: ENALAPRIL MALEATE
     Indication: Product used for unknown indication
     Dosage: 5 MG, QD (TABLET)
     Route: 048
     Dates: start: 20230626
  5. FUROSEMIDE [Concomitant]
     Active Substance: FUROSEMIDE
     Indication: Product used for unknown indication
     Dosage: 80 MG, QD (TABLET)
     Route: 048
     Dates: start: 20220701
  6. HYDRALAZINE HCL [Concomitant]
     Active Substance: HYDRALAZINE HYDROCHLORIDE
     Indication: Product used for unknown indication
     Dosage: 50 MG, TID (TABLET)
     Route: 048
     Dates: start: 20220701
  7. NIFEDIPINE [Concomitant]
     Active Substance: NIFEDIPINE
     Indication: Product used for unknown indication
     Dosage: 60 MG, BID (EXTENDED RELEASE TABLET)
     Route: 048
     Dates: start: 20220701
  8. NOVOLOG [Concomitant]
     Active Substance: INSULIN ASPART
     Indication: Product used for unknown indication
     Dosage: 100 UNIT/ML, QD (SUBCUTANEOUS SOLUTION AT BEDTIME)
     Route: 058
     Dates: start: 20220701
  9. OZEMPIC [Concomitant]
     Active Substance: SEMAGLUTIDE
     Indication: Product used for unknown indication
     Dosage: 2 MG/1.5ML, QW (SUBCUTANEOUS SOLUTION)
     Route: 058
     Dates: start: 20240514, end: 20250311
  10. SODIUM BICARBONATE [Concomitant]
     Active Substance: SODIUM BICARBONATE
     Indication: Product used for unknown indication
     Dosage: 650 MG, TID (TABLET)
     Route: 048
     Dates: start: 20240722
  11. SPIRONOLACTONE [Concomitant]
     Active Substance: SPIRONOLACTONE
     Indication: Product used for unknown indication
     Dosage: 100 MG, QD (TABLET)
     Route: 048
     Dates: start: 20220701
  12. VITAMIN D3 [Concomitant]
     Active Substance: CHOLECALCIFEROL
     Indication: Product used for unknown indication
     Dosage: 50 MICROGRAM, QD (200)
     Route: 048
     Dates: start: 20220701

REACTIONS (1)
  - Thrombosis [Unknown]

NARRATIVE: CASE EVENT DATE: 20250306
